FAERS Safety Report 17318444 (Version 4)
Quarter: 2021Q2

REPORT INFORMATION
  Report Type: Report from Study
  Country: CN (occurrence: CN)
  Receive Date: 20200124
  Receipt Date: 20210407
  Transmission Date: 20210716
  Serious: Yes (Other)
  Sender: FDA-Public Use
  Company Number: NVSC2020CN016388

PATIENT
  Age: 70 Year
  Sex: Male

DRUGS (32)
  1. TORASEMIDE [Concomitant]
     Active Substance: TORSEMIDE
     Dosage: 10 MG
     Route: 048
     Dates: end: 20200410
  2. DIGOXIN. [Concomitant]
     Active Substance: DIGOXIN
     Indication: PRE-EXISTING DISEASE
     Dosage: 0.125 MG, UNK
     Route: 048
     Dates: start: 200304, end: 20190903
  3. TRIMETAZIDINE DIHYDROCHLORIDE [Concomitant]
     Active Substance: TRIMETAZIDINE DIHYDROCHLORIDE
     Dosage: 20 MG, UNK
     Route: 048
     Dates: start: 200304, end: 20200410
  4. ATORVASTATIN CALCIUM. [Concomitant]
     Active Substance: ATORVASTATIN CALCIUM
     Indication: PRE-EXISTING DISEASE
     Dosage: 20 MG, UNK
     Route: 048
     Dates: start: 200304, end: 20190903
  5. CARBOCYSTEINE [Concomitant]
     Active Substance: CARBOCYSTEINE
     Indication: PRE-EXISTING DISEASE
     Dosage: 10 ML
     Route: 048
     Dates: start: 201904, end: 20200410
  6. TORASEMIDE [Concomitant]
     Active Substance: TORSEMIDE
     Indication: PRE-EXISTING DISEASE
     Dosage: 10 MG
     Route: 048
     Dates: start: 200304, end: 20190903
  7. ALLOPURINE [Concomitant]
     Dosage: 1 DF
     Route: 048
     Dates: start: 201904, end: 20200410
  8. WARFARIN [Concomitant]
     Active Substance: WARFARIN
     Dosage: 3 MG, UNK
     Route: 048
     Dates: start: 200304, end: 20200410
  9. TRIMETAZIDINE DIHYDROCHLORIDE [Concomitant]
     Active Substance: TRIMETAZIDINE DIHYDROCHLORIDE
     Indication: PRE-EXISTING DISEASE
     Dosage: 20 MG, UNK
     Route: 048
     Dates: start: 200304, end: 20190903
  10. RABEPRAZOLE SODIUM. [Concomitant]
     Active Substance: RABEPRAZOLE SODIUM
     Dosage: 20 MG, UNK
     Route: 048
     Dates: start: 200304, end: 20200410
  11. CLOPIDOGREL HYDROGEN SULFATE [Concomitant]
     Active Substance: CLOPIDOGREL BISULFATE
     Indication: PRE-EXISTING DISEASE
     Dosage: 75 MG, UNK
     Route: 048
     Dates: start: 200304, end: 20190903
  12. ALLOPURINE [Concomitant]
     Indication: PRE-EXISTING DISEASE
     Dosage: 1 DF, UNKNOWN
     Route: 048
     Dates: start: 201904, end: 20190903
  13. ISOSORBIDE MONONITRATE. [Concomitant]
     Active Substance: ISOSORBIDE MONONITRATE
     Indication: PRE-EXISTING DISEASE
     Dosage: 20 MG, UNK
     Route: 048
     Dates: start: 200304, end: 20190903
  14. ENTRESTO [Suspect]
     Active Substance: SACUBITRIL\VALSARTAN
     Indication: CARDIAC FAILURE CHRONIC
     Dosage: 25 MG, UNK
     Route: 048
     Dates: start: 20190808
  15. CLOPIDOGREL HYDROGEN SULFATE [Concomitant]
     Active Substance: CLOPIDOGREL BISULFATE
     Dosage: 75 MG, UNK
     Route: 048
     Dates: start: 200304, end: 20200410
  16. TOLVAPTAN [Concomitant]
     Active Substance: TOLVAPTAN
     Indication: PRE-EXISTING DISEASE
     Dosage: 10 MG, UNKNOWN
     Route: 048
     Dates: start: 200304, end: 20190903
  17. KETOTIFEN FUMARATE. [Concomitant]
     Active Substance: KETOTIFEN FUMARATE
     Indication: PRE-EXISTING DISEASE
     Dosage: 1 MG
     Route: 048
     Dates: start: 201904, end: 20190903
  18. NICORANDIL [Concomitant]
     Active Substance: NICORANDIL
     Indication: PRE-EXISTING DISEASE
     Dosage: 5 MG, UNK
     Route: 048
     Dates: start: 200304, end: 20190903
  19. DIGOXIN. [Concomitant]
     Active Substance: DIGOXIN
     Dosage: 0.125 MG, UNK
     Route: 048
     Dates: start: 200304, end: 20200410
  20. RABEPRAZOLE SODIUM. [Concomitant]
     Active Substance: RABEPRAZOLE SODIUM
     Indication: PRE-EXISTING DISEASE
     Dosage: 20 MG, UNK
     Route: 048
     Dates: start: 200304, end: 20190903
  21. KETOTIFEN FUMARATE. [Concomitant]
     Active Substance: KETOTIFEN FUMARATE
     Dosage: 1 MG
     Route: 048
     Dates: start: 201904, end: 20200410
  22. WARFARIN [Concomitant]
     Active Substance: WARFARIN
     Indication: PRE-EXISTING DISEASE
     Dosage: 3 MG
     Route: 048
     Dates: start: 200304, end: 20190903
  23. ISOSORBIDE MONONITRATE. [Concomitant]
     Active Substance: ISOSORBIDE MONONITRATE
     Dosage: 20 MG, UNK
     Route: 048
     Dates: start: 200304, end: 20200410
  24. ATORVASTATIN CALCIUM. [Concomitant]
     Active Substance: ATORVASTATIN CALCIUM
     Dosage: 20 UNK
     Route: 048
     Dates: start: 200304, end: 20200410
  25. SPIRONOLACTON [Concomitant]
     Active Substance: SPIRONOLACTONE
     Indication: PRE-EXISTING DISEASE
     Dosage: 20 MG, UNK
     Route: 048
     Dates: start: 200304, end: 20190903
  26. MONTELUKAST SODIUM. [Concomitant]
     Active Substance: MONTELUKAST SODIUM
     Dosage: 10 MG
     Route: 048
     Dates: end: 20200410
  27. PIPERAZINE FERULAT [Concomitant]
     Indication: PRE-EXISTING DISEASE
     Dosage: 150 MG
     Route: 048
     Dates: start: 201902, end: 20190903
  28. PIPERAZINE FERULAT [Concomitant]
     Dosage: 150 MG
     Route: 048
     Dates: start: 201902, end: 20200410
  29. NICORANDIL [Concomitant]
     Active Substance: NICORANDIL
     Dosage: 5 MG, UNK
     Route: 048
     Dates: start: 200304, end: 20200410
  30. SPIRONOLACTON [Concomitant]
     Active Substance: SPIRONOLACTONE
     Dosage: 20 MG, UNK
     Route: 048
     Dates: start: 200304, end: 20200410
  31. TOLVAPTAN [Concomitant]
     Active Substance: TOLVAPTAN
     Dosage: 10 MG
     Route: 048
     Dates: end: 20200410
  32. MONTELUKAST SODIUM. [Concomitant]
     Active Substance: MONTELUKAST SODIUM
     Indication: PRE-EXISTING DISEASE
     Dosage: 10 MG, UNKNOWN
     Route: 048
     Dates: start: 201904, end: 20190903

REACTIONS (3)
  - Vertigo [Recovered/Resolved]
  - Tachypnoea [Unknown]
  - Chest discomfort [Recovering/Resolving]

NARRATIVE: CASE EVENT DATE: 201908
